FAERS Safety Report 8611536-1 (Version None)
Quarter: 2012Q3

REPORT INFORMATION
  Report Type: 
  Country: None (occurrence: None)
  Receive Date: 20120822
  Receipt Date: 20120813
  Transmission Date: 20120928
  Serious: Yes (Other)
  Sender: FDA-Public Use
  Company Number: CA-ASTRAZENECA-2012SE57151

PATIENT
  Age: 59 Year
  Sex: Female

DRUGS (3)
  1. LEVOTHYROXINE SODIUM [Concomitant]
     Dosage: DAILY
     Route: 048
  2. CRESTOR [Suspect]
     Route: 048
  3. OLMESARTAN MEDOXOMIL [Concomitant]
     Route: 048
     Dates: start: 20111201

REACTIONS (1)
  - ROTATOR CUFF SYNDROME [None]
